FAERS Safety Report 7605085-7 (Version None)
Quarter: 2011Q3

REPORT INFORMATION
  Report Type: 
  Country: None (occurrence: None)
  Receive Date: 20110713
  Receipt Date: 20090811
  Transmission Date: 20111222
  Serious: Yes (Death, Other)
  Sender: FDA-Public Use
  Company Number: US-BAYER-200921458NA

PATIENT
  Age: 71 Year
  Sex: Female
  Weight: 58.182 kg

DRUGS (26)
  1. OMNISCAN [Suspect]
     Indication: ANGIOGRAM
     Route: 042
     Dates: start: 20061003, end: 20061003
  2. TOBRADEX [Concomitant]
  3. CONTRAST MEDIA [Concomitant]
     Indication: ANGIOGRAM
     Dates: start: 20070301, end: 20070301
  4. RENAGEL [Concomitant]
  5. AUGMENTIN '125' [Concomitant]
  6. CONTRAST MEDIA [Concomitant]
     Indication: COMPUTERISED TOMOGRAM
     Dates: start: 20060227, end: 20060227
  7. LOPRESSOR [Concomitant]
  8. MAGNEVIST [Suspect]
     Indication: ANGIOGRAM
     Dosage: UNK UNK, ONCE
     Dates: start: 20060724, end: 20060724
  9. LEXAPRO [Concomitant]
  10. ACETAMINOPHEN [Concomitant]
  11. PROSTAT [Concomitant]
  12. DOXEPIN [Concomitant]
  13. BENADRYL [Concomitant]
  14. PLAVIX [Concomitant]
  15. PEPCID [Concomitant]
  16. LASIX [Concomitant]
  17. GARAMYCIN [Concomitant]
  18. ZANTAC [Concomitant]
  19. ZOCOR [Concomitant]
  20. ALLEGRA [Concomitant]
  21. ACYCLOVIR [Concomitant]
  22. COUMADIN [Concomitant]
  23. ENALAPRIL MALEATE [Concomitant]
  24. GABAPENTIN [Concomitant]
  25. EPOGEN [Concomitant]
  26. NEPRO [Concomitant]

REACTIONS (22)
  - OEDEMA PERIPHERAL [None]
  - JOINT RANGE OF MOTION DECREASED [None]
  - JOINT STIFFNESS [None]
  - PAIN OF SKIN [None]
  - SKIN INDURATION [None]
  - MOBILITY DECREASED [None]
  - PAIN [None]
  - DEATH [None]
  - PAIN IN EXTREMITY [None]
  - ANHEDONIA [None]
  - SKIN HYPERPIGMENTATION [None]
  - SCAR [None]
  - NEPHROGENIC SYSTEMIC FIBROSIS [None]
  - RASH [None]
  - JOINT CONTRACTURE [None]
  - SKIN EXFOLIATION [None]
  - SKIN TIGHTNESS [None]
  - EMOTIONAL DISTRESS [None]
  - PRURITUS [None]
  - SKIN HYPERTROPHY [None]
  - ERYTHEMA [None]
  - ALOPECIA [None]
